FAERS Safety Report 15981290 (Version 1)
Quarter: 2019Q1

REPORT INFORMATION
  Report Type: Spontaneous
  Country: DE (occurrence: DE)
  Receive Date: 20190219
  Receipt Date: 20190219
  Transmission Date: 20190418
  Serious: Yes (Other)
  Sender: FDA-Public Use
  Company Number: PHHY2019DE036077

PATIENT
  Age: 74 Year
  Sex: Male

DRUGS (1)
  1. METOHEXAL SUCC [Suspect]
     Active Substance: METOPROLOL SUCCINATE
     Indication: PRODUCT USED FOR UNKNOWN INDICATION
     Dosage: UNK
     Route: 065

REACTIONS (10)
  - Sexual dysfunction [Unknown]
  - Erectile dysfunction [Unknown]
  - Peripheral coldness [Unknown]
  - Gait disturbance [Unknown]
  - Epistaxis [Unknown]
  - Arrhythmia [Unknown]
  - Peripheral venous disease [Unknown]
  - Photophobia [Unknown]
  - Muscle spasms [Unknown]
  - Oedema peripheral [Unknown]
